FAERS Safety Report 9741546 (Version 1)
Quarter: 2013Q4

REPORT INFORMATION
  Report Type: Spontaneous
  Country: FR (occurrence: FR)
  Receive Date: 20131210
  Receipt Date: 20131210
  Transmission Date: 20140711
  Serious: Yes (Hospitalization)
  Sender: FDA-Public Use
  Company Number: FR-ROCHE-1315966

PATIENT
  Age: 60 Year
  Sex: Male

DRUGS (4)
  1. AVASTIN [Suspect]
     Indication: LUNG ADENOCARCINOMA
     Dosage: CYCLE 1
     Route: 042
     Dates: start: 20130910
  2. AVASTIN [Suspect]
     Dosage: CYCLE 2
     Route: 042
     Dates: start: 20131008
  3. TAXOL [Suspect]
     Indication: NEURALGIA
     Dosage: (CYCLE 1 DAY 8 ON 17/SEP/2013) AND (CYCLE 1 DAY 15 ON 24/SEP/2013).
     Route: 042
  4. TAXOL [Suspect]
     Dosage: (CYCLE 2 DAY 8 ON 15/OCT/2013) AND (CYCLE 2 DAY 15 ON 31/OCT/2013)
     Route: 042

REACTIONS (1)
  - Pneumothorax [Not Recovered/Not Resolved]
